FAERS Safety Report 4931194-7 (Version None)
Quarter: 2006Q1

REPORT INFORMATION
  Report Type: 
  Country: None (occurrence: None)
  Receive Date: 20060227
  Receipt Date: 20060215
  Transmission Date: 20060701
  Serious: Yes (Other)
  Sender: FDA-Public Use
  Company Number: US-2006-002293

PATIENT

DRUGS (9)
  1. CAMPATH [Suspect]
     Indication: RENAL AND PANCREAS TRANSPLANT
     Dosage: 30 MG, 1 DOSE OVER 2 HRS INTRAOP, INTRAVENOUS
     Route: 042
  2. METHYLPREDNISOLONE [Concomitant]
  3. TACROLIMUS (TACROLIMUS) [Concomitant]
  4. SIROLIMUS (SIROLIMUS) [Concomitant]
  5. LOVENOX [Concomitant]
  6. ASPIRIN ENTRIC COATED K.P. (ACETYLSALICYLIC ACID) [Concomitant]
  7. VANCOMYCIN [Concomitant]
  8. FLUCONAZOLE [Concomitant]
  9. ZOSYN [Concomitant]

REACTIONS (2)
  - ARTERIAL THROMBOSIS [None]
  - PANCREAS TRANSPLANT REJECTION [None]
